FAERS Safety Report 6074414-0 (Version None)
Quarter: 2009Q1

REPORT INFORMATION
  Report Type: 
  Country: None (occurrence: None)
  Receive Date: 20090206
  Receipt Date: 20090121
  Transmission Date: 20090719
  Serious: No
  Sender: FDA-Public Use
  Company Number: 000245

PATIENT
  Sex: Male

DRUGS (4)
  1. LACOSAMIDE [Suspect]
     Dosage: 50 MG, 50 MG DAILY
  2. LAMOTRIGINE [Concomitant]
  3. VALPROIC ACID [Concomitant]
  4. ZINC SULFATE [Concomitant]

REACTIONS (2)
  - PNEUMONIA [None]
  - RENAL FAILURE [None]
